FAERS Safety Report 18179206 (Version 1)
Quarter: 2020Q3

REPORT INFORMATION
  Report Type: Spontaneous
  Country: PT (occurrence: PT)
  Receive Date: 20200821
  Receipt Date: 20200821
  Transmission Date: 20201103
  Serious: Yes (Disabling)
  Sender: FDA-Public Use
  Company Number: PT-TEVA-2020-PT-1818354

PATIENT
  Sex: Male

DRUGS (2)
  1. FLUOXETINE [Concomitant]
     Active Substance: FLUOXETINE HYDROCHLORIDE
     Route: 065
  2. QUETIAPINE. [Suspect]
     Active Substance: QUETIAPINE
     Indication: ANXIETY
     Dosage: 50 MILLIGRAM DAILY;
     Route: 065
     Dates: start: 20200814, end: 20200817

REACTIONS (2)
  - Impaired work ability [Unknown]
  - Sedation [Unknown]

NARRATIVE: CASE EVENT DATE: 202008
